FAERS Safety Report 17406122 (Version 1)
Quarter: 2020Q1

REPORT INFORMATION
  Report Type: Spontaneous
  Country: ES (occurrence: ES)
  Receive Date: 20200212
  Receipt Date: 20200212
  Transmission Date: 20200409
  Serious: Yes (Hospitalization)
  Sender: FDA-Public Use
  Company Number: ES-AUROBINDO-AUR-APL-2020-006758

PATIENT
  Age: 86 Year
  Sex: Female

DRUGS (7)
  1. BISOPROLOL 5 MG FILM COATED TABLETS [Suspect]
     Active Substance: BISOPROLOL
     Indication: CARDIAC ELECTROPHYSIOLOGIC STUDY
     Dosage: 5 MILLIGRAM, TWO TIMES A DAY
     Route: 048
     Dates: start: 20090603
  2. ALLOPURINOL. [Concomitant]
     Active Substance: ALLOPURINOL
     Indication: GOUT
     Dosage: 300 MILLIGRAM, ONCE A DAY
     Route: 048
     Dates: start: 20121221
  3. METFORMIN [Concomitant]
     Active Substance: METFORMIN HYDROCHLORIDE
     Indication: TYPE 2 DIABETES MELLITUS
     Dosage: 850 MILLIGRAM, ONCE A DAY
     Route: 048
     Dates: start: 20090721
  4. SINTROM [Suspect]
     Active Substance: ACENOCOUMAROL
     Indication: ARRHYTHMIA
     Dosage: 1 MILLIGRAM, ONCE A DAY
     Route: 048
     Dates: start: 20190829
  5. LOSARTAN. [Concomitant]
     Active Substance: LOSARTAN
     Indication: ESSENTIAL HYPERTENSION
     Dosage: 25 MILLIGRAM, TWO TIMES A DAY
     Route: 048
     Dates: start: 20191011
  6. DIGOXIN. [Concomitant]
     Active Substance: DIGOXIN
     Indication: ATRIAL FIBRILLATION
     Dosage: 0.25 MILLIGRAM, ONCE A DAY
     Route: 048
     Dates: start: 20191016
  7. LORAZEPAM. [Concomitant]
     Active Substance: LORAZEPAM
     Indication: ANXIETY
     Dosage: 1 MILLIGRAM, ONCE A DAY
     Route: 048
     Dates: start: 20191011

REACTIONS (3)
  - Tachycardia [Recovering/Resolving]
  - Intercepted medication error [Recovering/Resolving]
  - International normalised ratio increased [Recovering/Resolving]

NARRATIVE: CASE EVENT DATE: 20200120
